FAERS Safety Report 5710787-3 (Version None)
Quarter: 2008Q2

REPORT INFORMATION
  Report Type: 
  Country: None (occurrence: None)
  Receive Date: 20080417
  Receipt Date: 20080417
  Transmission Date: 20081010
  Serious: Yes (Disabling)
  Sender: FDA-Public Use
  Company Number: None

PATIENT
  Sex: Female
  Weight: 58.9676 kg

DRUGS (2)
  1. CADUET [Suspect]
     Indication: BLOOD CHOLESTEROL INCREASED
     Dosage: ONE DAILY
     Dates: start: 20061001, end: 20071001
  2. CADUET [Suspect]
     Indication: HYPERTENSION
     Dosage: ONE DAILY
     Dates: start: 20061001, end: 20071001

REACTIONS (10)
  - ADNEXA UTERI PAIN [None]
  - BALANCE DISORDER [None]
  - BLADDER DISORDER [None]
  - FEELING ABNORMAL [None]
  - GASTROINTESTINAL DISORDER [None]
  - MUSCLE DISORDER [None]
  - PAIN [None]
  - PELVIC FLOOR MUSCLE WEAKNESS [None]
  - SENSATION OF PRESSURE [None]
  - TREMOR [None]
